FAERS Safety Report 19236463 (Version 1)
Quarter: 2021Q2

REPORT INFORMATION
  Report Type: Spontaneous
  Country: FR (occurrence: FR)
  Receive Date: 20210510
  Receipt Date: 20210510
  Transmission Date: 20210717
  Serious: Yes (Other)
  Sender: FDA-Public Use
  Company Number: NVSC2021FR100047

PATIENT
  Age: 59 Year
  Sex: Female
  Weight: 55 kg

DRUGS (9)
  1. PEMETREXED. [Suspect]
     Active Substance: PEMETREXED
     Indication: LUNG ADENOCARCINOMA
     Dosage: 812 MG,CYCLIC
     Route: 042
     Dates: start: 20210114, end: 20210114
  2. METHYLPREDNISOLONE. [Concomitant]
     Active Substance: METHYLPREDNISOLONE
     Indication: PAIN
     Dosage: 120 MG, QD
     Route: 048
     Dates: start: 20210105
  3. PARACETAMOL [Suspect]
     Active Substance: ACETAMINOPHEN
     Indication: PAIN
     Dosage: 3 G, QD
     Route: 042
     Dates: start: 20210105, end: 20210122
  4. MANNITOL. [Concomitant]
     Active Substance: MANNITOL
     Indication: BRAIN OEDEMA
     Dosage: 200 ML, QD
     Route: 048
     Dates: start: 20210105, end: 20210217
  5. LEVETIRACETAM. [Concomitant]
     Active Substance: LEVETIRACETAM
     Indication: PRODUCT USED FOR UNKNOWN INDICATION
     Dosage: 1000 MG, QD (500 MG X2/JOUR)
     Route: 048
     Dates: start: 20210105
  6. CARBOPLATINO ACCORD [Concomitant]
     Active Substance: CARBOPLATIN
     Indication: LUNG ADENOCARCINOMA
     Dosage: 580 MG,CYCLIC
     Route: 042
     Dates: start: 20210114
  7. PANTOPRAZOLE [Concomitant]
     Active Substance: PANTOPRAZOLE
     Indication: GASTRIC ULCER
     Dosage: 1 DF,QD
     Route: 048
     Dates: start: 20210111
  8. THERALENE [Concomitant]
     Active Substance: TRIMEPRAZINE
     Indication: PRODUCT USED FOR UNKNOWN INDICATION
     Dosage: 4 MG,QD
     Route: 048
  9. LOVENOX [Concomitant]
     Active Substance: ENOXAPARIN SODIUM
     Indication: THROMBOSIS PROPHYLAXIS
     Dosage: 4000 IU, QD
     Route: 058
     Dates: start: 20210105

REACTIONS (1)
  - Hepatocellular injury [Recovered/Resolved]

NARRATIVE: CASE EVENT DATE: 20210121
